FAERS Safety Report 21306872 (Version 1)
Quarter: 2022Q3

REPORT INFORMATION
  Report Type: Spontaneous
  Country: US (occurrence: None)
  Receive Date: 20220907
  Receipt Date: 20220907
  Transmission Date: 20221027
  Serious: Yes (Death)
  Sender: FDA-Public Use
  Company Number: None

PATIENT
  Age: 74 Year
  Sex: Male
  Weight: 120.2 kg

DRUGS (16)
  1. MEKTOVI [Suspect]
     Active Substance: BINIMETINIB
     Indication: Metastatic malignant melanoma
     Dosage: FREQUENCY : TWICE A DAY;?
     Route: 048
     Dates: start: 202112
  2. BRAFTOVI [Suspect]
     Active Substance: ENCORAFENIB
     Indication: Metastatic malignant melanoma
     Dosage: FREQUENCY : DAILY;?
     Route: 048
     Dates: start: 202112
  3. CALCIUM CARBONATE [Concomitant]
     Active Substance: CALCIUM CARBONATE
  4. LIDOCAINE [Concomitant]
     Active Substance: LIDOCAINE
  5. GABAPENTIN [Concomitant]
     Active Substance: GABAPENTIN
  6. HUMALOG [Concomitant]
     Active Substance: INSULIN LISPRO
  7. INSULIN GLARGINE [Concomitant]
     Active Substance: INSULIN GLARGINE
  8. LIDOCAINE [Concomitant]
     Active Substance: LIDOCAINE
  9. MELATONIN [Concomitant]
     Active Substance: MELATONIN
  10. MIDODRINE [Concomitant]
     Active Substance: MIDODRINE
  11. NYSTATIN [Concomitant]
     Active Substance: NYSTATIN
  12. PANTOPRAZOLE [Concomitant]
     Active Substance: PANTOPRAZOLE
  13. ROSUVASTATIN [Concomitant]
     Active Substance: ROSUVASTATIN
  14. TAMSULOSIN [Concomitant]
     Active Substance: TAMSULOSIN
  15. TYLENOL [Concomitant]
     Active Substance: ACETAMINOPHEN
  16. VITAMIN D [Concomitant]
     Active Substance: VITAMIN D NOS

REACTIONS (1)
  - Death [None]
